FAERS Safety Report 9372897 (Version 1)
Quarter: 2013Q2

REPORT INFORMATION
  Report Type: Spontaneous
  Country: US (occurrence: US)
  Receive Date: 20130627
  Receipt Date: 20130627
  Transmission Date: 20140414
  Serious: Yes (Other)
  Sender: FDA-Public Use
  Company Number: US-WATSON-2011-18570

PATIENT
  Age: 52 Year
  Sex: Male
  Weight: 103 kg

DRUGS (17)
  1. METOCLOPRAMIDE HYDROCHLORIDE (WATSON LABORATORIES) [Suspect]
     Indication: PRODUCT USED FOR UNKNOWN INDICATION
     Dosage: 10 MG, QID
     Route: 048
  2. REGLAN /00041901/ [Suspect]
     Indication: GASTROOESOPHAGEAL REFLUX DISEASE
     Dosage: UNK
     Route: 048
  3. ACCUPRIL [Concomitant]
     Indication: HYPERTENSION
     Dosage: 20 MG, DAILY
     Route: 048
  4. LOVASTATIN [Concomitant]
     Indication: HYPERLIPIDAEMIA
     Dosage: 40 MG, DAILY
     Route: 048
  5. ALPRAZOLAM [Concomitant]
     Indication: ANXIETY
     Dosage: 1 MG, BID
     Route: 048
  6. SILDENAFIL [Concomitant]
     Indication: ERECTILE DYSFUNCTION
     Dosage: 100 MG, PRN
     Route: 048
  7. ZYRTEC [Concomitant]
     Indication: RHINITIS ALLERGIC
     Dosage: 10 MG, DAILY
     Route: 048
  8. ACETAM [Concomitant]
     Indication: PAIN
     Dosage: 500 MG, UNK
     Route: 048
  9. HYDROCODONE [Concomitant]
     Indication: PAIN
     Dosage: 5 MG, UNK
     Route: 048
  10. CAPSAICIN [Concomitant]
     Indication: PAIN
     Route: 061
  11. DICLOFENAC [Concomitant]
     Indication: PRODUCT USED FOR UNKNOWN INDICATION
     Dosage: 75 MG, BID
     Route: 048
  12. LISINOPRIL [Concomitant]
     Indication: HYPERTENSION
     Dosage: 40 MG, UNK
     Route: 048
  13. NORTRIPTYLINE [Concomitant]
     Indication: MOOD ALTERED
     Dosage: 20 MG, DAILY
     Route: 048
  14. PANTOPRAZOLE [Concomitant]
     Indication: ABDOMINAL PAIN UPPER
     Dosage: 40 MG, BID
     Route: 048
  15. RANITIDINE [Concomitant]
     Indication: DYSPEPSIA
     Dosage: 150 MG, DAILY
     Route: 048
  16. SIMETHICONE [Concomitant]
     Indication: FLATULENCE
     Dosage: 160 MG, TID
     Route: 048
  17. SIMVASTATIN [Concomitant]
     Indication: BLOOD CHOLESTEROL
     Dosage: 40 MG, DAILY
     Route: 048

REACTIONS (9)
  - Tardive dyskinesia [Unknown]
  - Nervous system disorder [Unknown]
  - Extrapyramidal disorder [Unknown]
  - Myoclonus [Unknown]
  - Foot fracture [Unknown]
  - Pain in extremity [Unknown]
  - Oesophageal candidiasis [Unknown]
  - Erectile dysfunction [Unknown]
  - Incorrect drug administration duration [Unknown]
